FAERS Safety Report 24634382 (Version 1)
Quarter: 2024Q4

REPORT INFORMATION
  Report Type: Spontaneous
  Country: US (occurrence: US)
  Receive Date: 20241119
  Receipt Date: 20241119
  Transmission Date: 20250115
  Serious: Yes (Other)
  Sender: NOVO NORDISK
  Company Number: US-NOVOPROD-1316314

PATIENT
  Sex: Female

DRUGS (1)
  1. OZEMPIC [Suspect]
     Active Substance: SEMAGLUTIDE
     Indication: Type 2 diabetes mellitus
     Dosage: ONCE WEEKLY
     Route: 058

REACTIONS (4)
  - Upper limb fracture [Not Recovered/Not Resolved]
  - Vomiting [Unknown]
  - Drug dose titration not performed [Not Recovered/Not Resolved]
  - Wrong technique in product usage process [Unknown]
